FAERS Safety Report 7290558-X (Version None)
Quarter: 2011Q1

REPORT INFORMATION
  Report Type: 
  Country: None (occurrence: None)
  Receive Date: 20110214
  Receipt Date: 20110203
  Transmission Date: 20110831
  Serious: Yes (Hospitalization, Other)
  Sender: FDA-Public Use
  Company Number: US-PFIZER INC-2011024767

PATIENT
  Sex: Female

DRUGS (1)
  1. CHANTIX [Suspect]
     Dosage: UNK
     Dates: start: 20090601

REACTIONS (7)
  - HOSTILITY [None]
  - DIZZINESS [None]
  - ANXIETY [None]
  - PARANOIA [None]
  - AGGRESSION [None]
  - CONVULSION [None]
  - DEPRESSION [None]
